FAERS Safety Report 11771711 (Version 1)
Quarter: 2015Q4

REPORT INFORMATION
  Report Type: Spontaneous
  Country: US (occurrence: None)
  Receive Date: 20151123
  Receipt Date: 20151123
  Transmission Date: 20160304
  Serious: Yes (Other)
  Sender: FDA-Public Use
  Company Number: None

PATIENT
  Age: 64 Year
  Sex: Female
  Weight: 95.26 kg

DRUGS (14)
  1. CENTRUM SILVER WOMEN 50+ [Concomitant]
  2. OSTEO BI-FLEXWITH MSN [Concomitant]
  3. POTASIUM CHLOR ER [Concomitant]
  4. SYSTANE BALANCELUBRCATIVE DROPS [Concomitant]
  5. JUBLIA [Suspect]
     Active Substance: EFINACONAZOLE
     Indication: ONYCHOMYCOSIS
     Dosage: MOISTEN BRUSH, APPLY THIN LAYER  APPLIED TO A SURFACE, USUALLY THE SKIN
     Route: 061
     Dates: start: 20150701, end: 20151006
  6. VITAMIN C 1000MG [Concomitant]
  7. PRAVASTATIN [Concomitant]
     Active Substance: PRAVASTATIN\PRAVASTATIN SODIUM
  8. FELODIPINE ER TABS [Concomitant]
  9. TOVIAZ TABS [Concomitant]
  10. FOOD CAROTENE 10,000 IU [Concomitant]
  11. CITRACAL CALCIUM CITRATE + D3 [Concomitant]
  12. FLUTICASONE PROPIONATE NASAL SPRAY [Concomitant]
     Active Substance: FLUTICASONE PROPIONATE
  13. PANTOPRAZOLE SOD DR TABS [Concomitant]
  14. ATENOLOLTABS [Concomitant]

REACTIONS (2)
  - Application site vesicles [None]
  - Application site pain [None]

NARRATIVE: CASE EVENT DATE: 20151007
